FAERS Safety Report 4281405-9 (Version None)
Quarter: 2004Q1

REPORT INFORMATION
  Report Type: 
  Country: None (occurrence: None)
  Receive Date: 20040109
  Receipt Date: 20030917
  Transmission Date: 20041129
  Serious: No
  Sender: FDA-Public Use
  Company Number: US048063

PATIENT
  Age: 51 Year
  Sex: Male

DRUGS (1)
  1. KINERET [Suspect]
     Indication: RHEUMATOID ARTHRITIS
     Dosage: 100 MG, DAILY, SC
     Route: 058

REACTIONS (2)
  - DRUG EFFECT DECREASED [None]
  - WHITE BLOOD CELL COUNT DECREASED [None]
